FAERS Safety Report 9874388 (Version 1)
Quarter: 2014Q1

REPORT INFORMATION
  Report Type: Spontaneous
  Country: CL (occurrence: CL)
  Receive Date: 20140206
  Receipt Date: 20140206
  Transmission Date: 20141002
  Serious: Yes (Other)
  Sender: FDA-Public Use
  Company Number: CL-ABBVIE-14P-034-1196444-00

PATIENT
  Sex: Male

DRUGS (3)
  1. NORVIR [Suspect]
     Indication: HIV INFECTION
     Route: 048
     Dates: start: 201310
  2. ELONTRIL [Suspect]
     Indication: DEPRESSION
     Route: 048
     Dates: start: 201307
  3. TRUVADA [Suspect]
     Indication: HIV INFECTION
     Route: 048
     Dates: start: 201310

REACTIONS (1)
  - Polyneuropathy [Not Recovered/Not Resolved]
